FAERS Safety Report 21238265 (Version 1)
Quarter: 2022Q3

REPORT INFORMATION
  Report Type: Spontaneous
  Country: US (occurrence: US)
  Receive Date: 20220822
  Receipt Date: 20220822
  Transmission Date: 20221027
  Serious: Yes (Other)
  Sender: FDA-Public Use
  Company Number: US-MYLANLABS-2022M1087661

PATIENT
  Age: 30 Year
  Sex: Female

DRUGS (5)
  1. URSODIOL [Suspect]
     Active Substance: URSODIOL
     Indication: Cholestasis of pregnancy
     Dosage: 300 MILLIGRAM, TID
     Route: 065
  2. URSODIOL [Suspect]
     Active Substance: URSODIOL
     Dosage: 600 MILLIGRAM, TID
     Route: 065
  3. RIFAMPIN [Suspect]
     Active Substance: RIFAMPIN
     Indication: Total bile acids increased
     Dosage: UNK
     Route: 065
  4. VITAMIN K [Suspect]
     Active Substance: PHYTONADIONE
     Indication: Vitamin K deficiency
     Dosage: UNK, INITIALLY 10 UNITSGIVEN ONCE, LATER 10 UNITS GIVEN THREE TIMES PER WEEK
     Route: 030
  5. VITAMIN D [Suspect]
     Active Substance: VITAMIN D NOS
     Indication: Vitamin D deficiency
     Dosage: UNK, 1000 UNITS DAILY WITH ADDITIONAL 25,000 UNITS WEEKLY
     Route: 065

REACTIONS (5)
  - Drug ineffective [Unknown]
  - Contraindicated product administered [Unknown]
  - Maternal exposure during pregnancy [Recovered/Resolved]
  - Normal newborn [Recovered/Resolved]
  - Off label use [Unknown]
